FAERS Safety Report 8606792 (Version 2)
Quarter: 2013Q2

REPORT INFORMATION
  Report Type: Spontaneous
  Country: US (occurrence: US)
  Receive Date: 20120611
  Receipt Date: 20130614
  Transmission Date: 20140414
  Serious: Yes (Other)
  Sender: FDA-Public Use
  Company Number: US-ASTRAZENECA-2012SE35845

PATIENT
  Age: 53 Year
  Sex: Male
  Weight: 94.3 kg

DRUGS (9)
  1. NEXIUM [Suspect]
     Indication: DYSPEPSIA
     Route: 048
     Dates: start: 1992
  2. PRILOSEC [Suspect]
     Route: 048
  3. PANTOPRAZOLE [Concomitant]
  4. PEPCID [Concomitant]
  5. SPORADIC ALKA SELTZER [Concomitant]
  6. TUMS [Concomitant]
  7. ROLAIDS [Concomitant]
  8. KLONOPIN [Concomitant]
     Indication: TREMOR
  9. INDERAL BP [Concomitant]
     Indication: TREMOR

REACTIONS (5)
  - Skin cancer [Unknown]
  - Osteoporosis [Unknown]
  - Multiple fractures [Unknown]
  - Tooth loss [Unknown]
  - Bone disorder [Unknown]
